FAERS Safety Report 10196507 (Version 3)
Quarter: 2014Q2

REPORT INFORMATION
  Report Type: Spontaneous
  Country: JP (occurrence: JP)
  Receive Date: 20140527
  Receipt Date: 20140620
  Transmission Date: 20141212
  Serious: Yes (Other)
  Sender: FDA-Public Use
  Company Number: JP-PFIZER INC-2014139716

PATIENT
  Age: 55 Year
  Sex: Male

DRUGS (13)
  1. NORVASC [Suspect]
     Indication: HYPERTENSION
     Dosage: 5 MG, UNK
     Route: 048
     Dates: start: 2008
  2. EXJADE [Interacting]
     Indication: IRON OVERLOAD
     Dosage: 1375 MG, (20MG/KG) UNK
     Route: 048
     Dates: start: 200805
  3. PREDNISOLONE [Concomitant]
     Dosage: 10 MG, DAILY
     Route: 048
     Dates: start: 200705
  4. DANAZOL [Concomitant]
     Dosage: 300 MG, DAILY
     Route: 048
     Dates: start: 200705
  5. PYRIDOXAL CALCIUM PHOSPHATE [Concomitant]
     Dosage: 40 MG, DAILY
     Route: 048
     Dates: start: 200705
  6. ACARBOSE [Concomitant]
     Dosage: 300 MG, DAILY
     Route: 048
     Dates: start: 200705
  7. METFORMIN HYDROCHLORIDE [Concomitant]
     Dosage: 750 MG, DAILY
     Route: 048
     Dates: start: 200705
  8. GLIMEPIRIDE [Concomitant]
     Dosage: 3 MG, DAILY
     Route: 048
     Dates: start: 200705
  9. SULPIRIDE [Concomitant]
     Dosage: 50 MG, DAILY
     Route: 048
     Dates: start: 200705
  10. SEPAZON [Concomitant]
     Dosage: 1 MG, DAILY
     Route: 048
     Dates: start: 200705
  11. ZOPICLONE [Concomitant]
     Dosage: 7.5 MG, DAILY
     Route: 048
     Dates: start: 200705
  12. LANSOPRAZOLE [Concomitant]
     Dosage: 50 MG, UNK
     Route: 048
     Dates: start: 200712
  13. FAMOTIDINE D [Concomitant]
     Dosage: 20 MG, DAILY
     Route: 048
     Dates: start: 200803

REACTIONS (2)
  - Drug interaction [Recovered/Resolved]
  - Aplasia pure red cell [Recovered/Resolved]
